FAERS Safety Report 10365603 (Version 1)
Quarter: 2014Q3

REPORT INFORMATION
  Report Type: Spontaneous
  Country: US (occurrence: None)
  Receive Date: 20140805
  Receipt Date: 20140805
  Transmission Date: 20150326
  Serious: Yes (Hospitalization)
  Sender: FDA-Public Use
  Company Number: None

PATIENT
  Age: 31 Year
  Sex: Female
  Weight: 64.6 kg

DRUGS (1)
  1. SORAFENIB [Suspect]
     Active Substance: SORAFENIB
     Indication: ACUTE MYELOID LEUKAEMIA
     Dosage: 2 PILLS BID ORAL
     Route: 048
     Dates: start: 20140521

REACTIONS (2)
  - Tooth infection [None]
  - Febrile neutropenia [None]

NARRATIVE: CASE EVENT DATE: 20140608
